FAERS Safety Report 5360229-5 (Version None)
Quarter: 2007Q2

REPORT INFORMATION
  Report Type: 
  Country: None (occurrence: None)
  Receive Date: 20070618
  Receipt Date: 20070604
  Transmission Date: 20071010
  Serious: No
  Sender: FDA-Public Use
  Company Number: BR-ELI_LILLY_AND_COMPANY-BR200706000807

PATIENT
  Age: 17 Year
  Sex: Female
  Weight: 84 kg

DRUGS (5)
  1. ZYPREXA [Suspect]
     Indication: DEPRESSION
     Dosage: UNK, UNKNOWN
     Route: 065
     Dates: start: 20060501, end: 20060801
  2. ZYPREXA [Suspect]
     Dosage: UNK, UNKNOWN
     Route: 065
     Dates: start: 20070401, end: 20070501
  3. BROMAZEPAM [Concomitant]
     Dosage: 3 MG, UNKNOWN
     Route: 065
  4. CITALOPRAM HYDROBROMIDE [Concomitant]
     Indication: ANTIDEPRESSANT THERAPY
     Dosage: 20 MG, UNKNOWN
     Route: 065
  5. ANAFRANIL [Concomitant]
     Indication: ANTIDEPRESSANT THERAPY
     Dosage: 75 MG, UNKNOWN
     Route: 065

REACTIONS (2)
  - ANAEMIA [None]
  - WEIGHT INCREASED [None]
